FAERS Safety Report 11856178 (Version 1)
Quarter: 2015Q4

REPORT INFORMATION
  Report Type: Spontaneous
  Country: US (occurrence: US)
  Receive Date: 20151221
  Receipt Date: 20151221
  Transmission Date: 20160305
  Serious: No
  Sender: FDA-Public Use
  Company Number: PHEH2015US026127

PATIENT
  Sex: Male
  Weight: 104.2 kg

DRUGS (2)
  1. ENTRESTO [Suspect]
     Active Substance: SACUBITRIL\VALSARTAN
     Indication: ASTHENIA
     Dosage: 100 MG (49/51 MG), UNK
     Route: 048
  2. ENTRESTO [Suspect]
     Active Substance: SACUBITRIL\VALSARTAN
     Indication: DYSPNOEA
     Dosage: 50 MG (24/26 MG), BID
     Route: 048
     Dates: start: 20151114

REACTIONS (2)
  - Therapeutic response unexpected [Recovering/Resolving]
  - Product use issue [Unknown]
